FAERS Safety Report 4497272-4 (Version None)
Quarter: 2004Q3

REPORT INFORMATION
  Report Type: 
  Country: None (occurrence: None)
  Receive Date: 20040927
  Receipt Date: 20040628
  Transmission Date: 20050211
  Serious: No
  Sender: FDA-Public Use
  Company Number: USA040671229

PATIENT
  Age: 13 Year
  Sex: Male
  Weight: 64 kg

DRUGS (3)
  1. STRATTERA [Suspect]
     Indication: ATTENTION DEFICIT/HYPERACTIVITY DISORDER
     Dates: start: 20040623
  2. FLUOXETINE [Concomitant]
  3. CONCERTA [Concomitant]

REACTIONS (1)
  - TIC [None]
